FAERS Safety Report 6330008-0 (Version None)
Quarter: 2009Q3

REPORT INFORMATION
  Report Type: 
  Country: None (occurrence: None)
  Receive Date: 20090825
  Receipt Date: 20090819
  Transmission Date: 20100115
  Serious: Yes (Other)
  Sender: FDA-Public Use
  Company Number: CHPA2009US17330

PATIENT
  Age: 50 Year
  Sex: Male

DRUGS (1)
  1. EX-LAX REG STR CHOCOLATED LAX PCS SEN      (SENNA GLYCOSIDES (CA SALTS [Suspect]
     Dosage: 15 MG, TWELVE TIMES A DAY, ORAL
     Route: 048
     Dates: start: 20090201

REACTIONS (3)
  - DRUG DEPENDENCE [None]
  - INTENTIONAL DRUG MISUSE [None]
  - OVERDOSE [None]
